FAERS Safety Report 11594400 (Version 1)
Quarter: 2015Q4

REPORT INFORMATION
  Report Type: Spontaneous
  Country: US (occurrence: US)
  Receive Date: 20151005
  Receipt Date: 20151005
  Transmission Date: 20160304
  Serious: No
  Sender: FDA-Public Use
  Company Number: US-PFIZER INC-2015317227

PATIENT
  Age: 22 Year
  Sex: Female

DRUGS (2)
  1. SPIRONOLACTONE. [Suspect]
     Active Substance: SPIRONOLACTONE
     Dosage: 100 MG, UNK
  2. SPIRONOLACTONE. [Suspect]
     Active Substance: SPIRONOLACTONE
     Dosage: 75 MG, UNK

REACTIONS (5)
  - Headache [Unknown]
  - Migraine [Unknown]
  - Dizziness [Unknown]
  - Vision blurred [Unknown]
  - Rash [Unknown]
